FAERS Safety Report 16833904 (Version 1)
Quarter: 2019Q3

REPORT INFORMATION
  Report Type: Report from Study
  Country: CA (occurrence: CA)
  Receive Date: 20190920
  Receipt Date: 20190920
  Transmission Date: 20191005
  Serious: Yes (Hospitalization, Other)
  Sender: FDA-Public Use
  Company Number: CA-JNJFOC-20190919478

PATIENT
  Age: 28 Year
  Sex: Male
  Weight: 115 kg

DRUGS (1)
  1. STELARA [Suspect]
     Active Substance: USTEKINUMAB
     Indication: CROHN^S DISEASE
     Dosage: STRENGTH = 90 MG
     Route: 058
     Dates: start: 20180427

REACTIONS (2)
  - Multiple sclerosis [Unknown]
  - Hemiplegia [Unknown]

NARRATIVE: CASE EVENT DATE: 20190831
